FAERS Safety Report 17885553 (Version 1)
Quarter: 2020Q2

REPORT INFORMATION
  Report Type: Report from Study
  Country: ES (occurrence: ES)
  Receive Date: 20200611
  Receipt Date: 20200611
  Transmission Date: 20200714
  Serious: Yes (Hospitalization)
  Sender: FDA-Public Use
  Company Number: ES-ACTELION-A-CH2020-205878

PATIENT
  Age: 26 Year
  Sex: Female
  Weight: 25.4 kg

DRUGS (14)
  1. LOPERAMIDA BELMAC [Concomitant]
     Indication: PROPHYLAXIS
     Dosage: UNK, PRN
     Route: 048
     Dates: start: 20200203
  2. METAMIZOL 1A PHARMA [Concomitant]
     Indication: PROPHYLAXIS
     Dosage: UNK
     Route: 048
     Dates: start: 20200203
  3. PARACETAMOL [Concomitant]
     Active Substance: ACETAMINOPHEN
     Indication: PROPHYLAXIS
     Dosage: UNK
     Route: 048
     Dates: start: 20200203
  4. TRAMADOL. [Concomitant]
     Active Substance: TRAMADOL
     Indication: PROPHYLAXIS
     Dosage: UNK
     Route: 048
     Dates: start: 20200203
  5. OPSUMIT [Suspect]
     Active Substance: MACITENTAN
     Indication: PULMONARY ARTERIAL HYPERTENSION
     Dosage: 10 MG, QD
     Route: 048
     Dates: start: 201812
  6. REMODULIN [Concomitant]
     Active Substance: TREPROSTINIL
     Indication: PULMONARY ARTERIAL HYPERTENSION
     Dosage: 28 MG, QD
     Route: 042
     Dates: start: 20200227
  7. REMODULIN [Concomitant]
     Active Substance: TREPROSTINIL
     Dosage: 24 MG, QD
     Route: 042
     Dates: start: 20200213, end: 20200226
  8. REMODULIN [Concomitant]
     Active Substance: TREPROSTINIL
     Dosage: 20 MG, QD
     Route: 042
     Dates: start: 20200130, end: 20200212
  9. METOCLOPRAMIDA ACCORD [Concomitant]
     Indication: PROPHYLAXIS
     Dosage: UNK
     Route: 048
     Dates: start: 20200203
  10. ADCIRCA [Concomitant]
     Active Substance: TADALAFIL
     Indication: PULMONARY ARTERIAL HYPERTENSION
     Dosage: 40 MG, QD
     Route: 048
     Dates: start: 201812
  11. PREDNISONE. [Concomitant]
     Active Substance: PREDNISONE
     Indication: LUPUS-LIKE SYNDROME
     Dosage: UNK
     Route: 048
     Dates: start: 20200121
  12. ACETYLSALICYLIC ACID [Concomitant]
     Active Substance: ASPIRIN
     Indication: PROPHYLAXIS
     Dosage: UNK
     Route: 048
     Dates: start: 20200121
  13. VELETRI [Suspect]
     Active Substance: EPOPROSTENOL
     Indication: PULMONARY ARTERIAL HYPERTENSION
     Dosage: 12 NG/KG, PER MIN
     Route: 042
     Dates: start: 20200121, end: 20200130
  14. HIDROXICLOROQUINA SULFATO [Concomitant]
     Active Substance: HYDROXYCHLOROQUINE SULFATE
     Indication: LUPUS-LIKE SYNDROME
     Dosage: UNK
     Route: 048
     Dates: start: 20200121

REACTIONS (2)
  - Hospitalisation [Recovered/Resolved]
  - Treatment noncompliance [Unknown]

NARRATIVE: CASE EVENT DATE: 20200121
